FAERS Safety Report 17108530 (Version 1)
Quarter: 2019Q4

REPORT INFORMATION
  Report Type: Spontaneous
  Country: US (occurrence: US)
  Receive Date: 20191203
  Receipt Date: 20191203
  Transmission Date: 20200122
  Serious: No
  Sender: FDA-Public Use
  Company Number: US-US WORLDMEDS, LLC-USW201909-001795

PATIENT
  Sex: Male

DRUGS (2)
  1. LUCEMYRA [Suspect]
     Active Substance: LOFEXIDINE
     Dosage: 0.18 MG TAKEN 3 TABLETS FOUR TIMES A DAY FOR 7 DAYS
     Dates: start: 20190904
  2. PROZAC [Concomitant]
     Active Substance: FLUOXETINE HYDROCHLORIDE

REACTIONS (3)
  - Feeling abnormal [Not Recovered/Not Resolved]
  - Hyperhidrosis [Not Recovered/Not Resolved]
  - Irritability [Not Recovered/Not Resolved]
